FAERS Safety Report 7516515-3 (Version None)
Quarter: 2011Q2

REPORT INFORMATION
  Report Type: 
  Country: None (occurrence: None)
  Receive Date: 20110601
  Receipt Date: 20110523
  Transmission Date: 20111010
  Serious: Yes (Hospitalization)
  Sender: FDA-Public Use
  Company Number: A0929576A

PATIENT
  Age: 43 Year
  Sex: Male

DRUGS (2)
  1. VENTOLIN [Suspect]
     Dosage: 90MCG UNKNOWN
     Route: 065
     Dates: start: 20100101
  2. ADVAIR DISKUS 100/50 [Suspect]
     Route: 055
     Dates: start: 20100101

REACTIONS (1)
  - DYSPNOEA [None]
